FAERS Safety Report 18321130 (Version 1)
Quarter: 2020Q3

REPORT INFORMATION
  Report Type: Spontaneous
  Country: CR (occurrence: CR)
  Receive Date: 20200928
  Receipt Date: 20200928
  Transmission Date: 20201103
  Serious: Yes (Other)
  Sender: FDA-Public Use
  Company Number: CR-PFIZER INC-2020370589

PATIENT
  Age: 83 Year
  Sex: Female

DRUGS (1)
  1. NORVASC [Suspect]
     Active Substance: AMLODIPINE BESYLATE
     Dosage: 2.5 MG, DAILY (HALF TABLET, DAILY)
     Route: 048
     Dates: start: 201905

REACTIONS (2)
  - Gait inability [Unknown]
  - Multiple sclerosis [Unknown]
